FAERS Safety Report 6202426-2 (Version None)
Quarter: 2009Q2

REPORT INFORMATION
  Report Type: 
  Country: None (occurrence: None)
  Receive Date: 20090526
  Receipt Date: 20090513
  Transmission Date: 20091009
  Serious: Yes (Other)
  Sender: FDA-Public Use
  Company Number: CA-PFIZER INC-2009185154

PATIENT
  Age: 70 Year

DRUGS (6)
  1. LIPITOR [Suspect]
     Indication: CARDIAC DISORDER
     Dosage: 80 MG, 1X/DAY
     Route: 048
     Dates: start: 19980101
  2. LIPITOR [Suspect]
     Indication: BLOOD CHOLESTEROL
  3. SERTRALINE HYDROCHLORIDE [Concomitant]
     Dosage: 100 MG, UNK
  4. ACETYLSALICYLIC ACID [Concomitant]
     Dosage: 325 MG, UNK
  5. BISOPROLOL [Concomitant]
     Dosage: 5 MG, UNK
  6. RAMIPRIL [Concomitant]
     Dosage: 10 MG, UNK

REACTIONS (1)
  - TYPE 2 DIABETES MELLITUS [None]
